FAERS Safety Report 14561664 (Version 2)
Quarter: 2021Q3

REPORT INFORMATION
  Report Type: Spontaneous
  Country: US (occurrence: US)
  Receive Date: 20180222
  Receipt Date: 20210705
  Transmission Date: 20211014
  Serious: Yes (Disabling)
  Sender: FDA-Public Use
  Company Number: US-TEVA-2018-US-862594

PATIENT
  Age: 61 Year
  Sex: Female

DRUGS (10)
  1. CYCLOPHOSPHAMIDE. [Concomitant]
     Active Substance: CYCLOPHOSPHAMIDE
     Indication: BREAST CANCER FEMALE
     Dosage: NUMBER OF CYCLE ? 04, FREQUENCY ? EVERY THREE WEEKS 970 MG 29?OCT?2015,  31?DEC?2015 (980 MG)
     Route: 042
     Dates: start: 20151029, end: 20151231
  2. TAXOTERE [Suspect]
     Active Substance: DOCETAXEL
     Indication: BREAST CANCER FEMALE
     Dosage: NUMBER OF CYCLE ? 04, FREQUENCY ? EVERY THREE WEEKS,120 MG START 29?OCT?2015 31?DEC?2015 (122 MG)
     Route: 042
     Dates: start: 20151029, end: 20151231
  3. ATORVASTATIN CALCIUM. [Concomitant]
     Active Substance: ATORVASTATIN CALCIUM
     Route: 065
  4. COMPAZINE [Concomitant]
     Active Substance: PROCHLORPERAZINE MALEATE
     Route: 065
  5. DOCETAXEL PFIZER [Suspect]
     Active Substance: DOCETAXEL
     Indication: BREAST CANCER FEMALE
     Dosage: NUMBER OF CYCLE ? 04, FREQUENCY ? EVERY THREE WEEKS,120 MG START 29?OCT?2015 31?DEC?2015 (122 MG)
     Route: 042
     Dates: start: 20151029, end: 20151231
  6. DOCETAXEL ACCORD [Suspect]
     Active Substance: DOCETAXEL
     Indication: BREAST CANCER FEMALE
     Dosage: NUMBER OF CYCLE ? 04, FREQUENCY ? EVERY THREE WEEKS,120 MG START 29?OCT?2015 31?DEC?2015 (122 MG)
     Route: 042
     Dates: start: 20151029, end: 20151231
  7. DOCETAXEL HOSPIRA [Suspect]
     Active Substance: DOCETAXEL
     Indication: BREAST CANCER FEMALE
     Dosage: NUMBER OF CYCLE ? 04, FREQUENCY ? EVERY THREE WEEKS,120 MG START 29?OCT?2015 31?DEC?2015 (122 MG)
     Route: 042
     Dates: start: 20151029, end: 20151231
  8. DOCETAXEL SANDOZ [Suspect]
     Active Substance: DOCETAXEL
     Indication: BREAST CANCER FEMALE
     Dosage: NUMBER OF CYCLE ? 04, FREQUENCY ? EVERY THREE WEEKS,120 MG START 29?OCT?2015 31?DEC?2015 (122 MG)
     Route: 042
     Dates: start: 20151029, end: 20151231
  9. DOCETAXEL ACTAVIS [Suspect]
     Active Substance: DOCETAXEL
     Indication: BREAST CANCER FEMALE
     Dosage: NUMBER OF CYCLE ? 04, FREQUENCY ? EVERY THREE WEEKS?120 MG START 29?OCT?2015 31?DEC?2015 (122 MG)
     Route: 042
     Dates: start: 20151029, end: 20151231
  10. DOCEFREZ [Suspect]
     Active Substance: DOCETAXEL ANHYDROUS
     Indication: BREAST CANCER FEMALE
     Dosage: NUMBER OF CYCLE ? 04, FREQUENCY ? EVERY THREE WEEKS,120 MG START 29?OCT?2015 31?DEC?2015 (122 MG)
     Route: 042
     Dates: start: 20151029, end: 20151231

REACTIONS (3)
  - Alopecia areata [Not Recovered/Not Resolved]
  - Hair texture abnormal [Not Recovered/Not Resolved]
  - Hair colour changes [Not Recovered/Not Resolved]

NARRATIVE: CASE EVENT DATE: 201606
